FAERS Safety Report 12272518 (Version 5)
Quarter: 2017Q3

REPORT INFORMATION
  Report Type: Report from Study
  Country: DE (occurrence: DE)
  Receive Date: 20160415
  Receipt Date: 20170823
  Transmission Date: 20171127
  Serious: Yes (Hospitalization)
  Sender: FDA-Public Use
  Company Number: PHHY2016DE049798

PATIENT
  Sex: Male

DRUGS (4)
  1. TASIGNA [Suspect]
     Active Substance: NILOTINIB
     Indication: CHRONIC MYELOID LEUKAEMIA
     Dosage: 600 MG, QD
     Route: 048
     Dates: start: 20151203, end: 20170203
  2. SALBUTAMOL [Concomitant]
     Active Substance: ALBUTEROL
     Indication: ASTHMA
     Dosage: 2 PUFFS, (2.5 ?G/D)
     Route: 055
     Dates: start: 1984
  3. FOSTER [Concomitant]
     Active Substance: BECLOMETHASONE\FORMOTEROL
     Indication: ASTHMA
     Dosage: 4 PUFFS, QD
     Route: 065
     Dates: start: 2014
  4. LAIF [Concomitant]
     Indication: RESTLESSNESS
     Dosage: 3X4050 MG, TID
     Route: 065
     Dates: start: 2012, end: 20151203

REACTIONS (3)
  - Dyspepsia [Recovering/Resolving]
  - Rash [Recovered/Resolved]
  - Arthralgia [Recovered/Resolved]

NARRATIVE: CASE EVENT DATE: 201602
